FAERS Safety Report 9508715 (Version 1)
Quarter: 2013Q3

REPORT INFORMATION
  Report Type: Report from Study
  Country: US (occurrence: US)
  Receive Date: 20130909
  Receipt Date: 20130909
  Transmission Date: 20140515
  Serious: Yes (Hospitalization, Other)
  Sender: FDA-Public Use
  Company Number: US-ABBOTT-13P-163-1142626-00

PATIENT
  Sex: Male

DRUGS (1)
  1. HUMIRA [Suspect]
     Indication: CROHN^S DISEASE
     Dates: start: 201009, end: 20130712

REACTIONS (4)
  - Aggression [Unknown]
  - Self-injurious ideation [Unknown]
  - Violence-related symptom [Unknown]
  - Depression [Unknown]
